FAERS Safety Report 4290887-8 (Version None)
Quarter: 2004Q1

REPORT INFORMATION
  Report Type: 
  Country: None (occurrence: None)
  Receive Date: 20040209
  Receipt Date: 20031229
  Transmission Date: 20041129
  Serious: Yes (Other)
  Sender: FDA-Public Use
  Company Number: ETHYOL-02601

PATIENT
  Age: 54 Year
  Sex: Female

DRUGS (3)
  1. ETHYOL [Suspect]
     Indication: APTYALISM
     Dosage: 500 MG, 1 IN 1 D, SUBCUTANEOUS
     Route: 058
     Dates: start: 20030310, end: 20030312
  2. CHEMOTHERAPY [Concomitant]
  3. RADIATION [Concomitant]

REACTIONS (4)
  - ABDOMINAL PAIN UPPER [None]
  - NAUSEA [None]
  - SHOCK [None]
  - VOMITING [None]
